FAERS Safety Report 16998366 (Version 1)
Quarter: 2019Q4

REPORT INFORMATION
  Report Type: Spontaneous
  Country: GB (occurrence: GB)
  Receive Date: 20191106
  Receipt Date: 20191106
  Transmission Date: 20200122
  Serious: Yes (Other)
  Sender: FDA-Public Use
  Company Number: GB-ACCORD-160020

PATIENT
  Age: 54 Year
  Sex: Female
  Weight: 62 kg

DRUGS (5)
  1. CODEINE [Concomitant]
     Active Substance: CODEINE
     Dosage: 4 TIMES/DAY
     Dates: start: 20180207
  2. GABAPENTIN. [Concomitant]
     Active Substance: GABAPENTIN
     Dosage: AT NIGHT, INCREASE TO TWICE DAILY FOR ...
     Dates: start: 20180207
  3. RANITIDINE. [Concomitant]
     Active Substance: RANITIDINE
     Dates: start: 20170801, end: 20180122
  4. EVOREL [Concomitant]
     Dosage: APPLY
     Dates: start: 20171031
  5. AMITRIPTYLINE [Suspect]
     Active Substance: AMITRIPTYLINE
     Indication: PRODUCT USED FOR UNKNOWN INDICATION
     Dates: start: 20180207

REACTIONS (3)
  - Drug intolerance [Unknown]
  - Dizziness [Unknown]
  - Photopsia [Unknown]

NARRATIVE: CASE EVENT DATE: 20180207
